FAERS Safety Report 7809450-4 (Version None)
Quarter: 2011Q4

REPORT INFORMATION
  Report Type: 
  Country: None (occurrence: None)
  Receive Date: 20111012
  Receipt Date: 20110928
  Transmission Date: 20120403
  Serious: Yes (Hospitalization, Other)
  Sender: FDA-Public Use
  Company Number: PHEH2011US04731

PATIENT
  Sex: Female

DRUGS (1)
  1. NEORAL [Suspect]
     Indication: LIVER TRANSPLANT
     Dosage: 12.5 MG, BID
     Route: 048
     Dates: start: 20110325

REACTIONS (20)
  - ANAEMIA [None]
  - SERUM FERRITIN INCREASED [None]
  - BLOOD BILIRUBIN INCREASED [None]
  - BLOOD ALKALINE PHOSPHATASE INCREASED [None]
  - GLOMERULAR FILTRATION RATE DECREASED [None]
  - IRON OVERLOAD [None]
  - ASPARTATE AMINOTRANSFERASE INCREASED [None]
  - IRON BINDING CAPACITY TOTAL DECREASED [None]
  - DYSPEPSIA [None]
  - BLOOD CREATININE INCREASED [None]
  - ALANINE AMINOTRANSFERASE INCREASED [None]
  - RED BLOOD CELL COUNT DECREASED [None]
  - VOMITING [None]
  - BLOOD IRON INCREASED [None]
  - HEPATITIS C [None]
  - RENAL DISORDER [None]
  - PRURITUS [None]
  - SCAR [None]
  - GASTROOESOPHAGEAL REFLUX DISEASE [None]
  - NAUSEA [None]
